FAERS Safety Report 22595071 (Version 1)
Quarter: 2023Q2

REPORT INFORMATION
  Report Type: Spontaneous
  Country: DE (occurrence: DE)
  Receive Date: 20230613
  Receipt Date: 20230613
  Transmission Date: 20230722
  Serious: Yes (Hospitalization)
  Sender: FDA-Public Use
  Company Number: DE-ACORDA-ACO_175585_2023

PATIENT
  Age: 64 Year
  Sex: Male

DRUGS (3)
  1. INBRIJA [Suspect]
     Active Substance: LEVODOPA
     Indication: Product used for unknown indication
     Dosage: 33 MILLIGRAM
  2. BENSERAZIDE HYDROCHLORIDE\LEVODOPA [Concomitant]
     Active Substance: BENSERAZIDE HYDROCHLORIDE\LEVODOPA
     Indication: Product used for unknown indication
     Dosage: UNK
     Route: 065
  3. PIRIBEDIL [Concomitant]
     Active Substance: PIRIBEDIL
     Indication: Product used for unknown indication
     Dosage: UNK
     Route: 065

REACTIONS (2)
  - Microsleep [Unknown]
  - Road traffic accident [Unknown]

NARRATIVE: CASE EVENT DATE: 20230413
